FAERS Safety Report 5799683-3 (Version None)
Quarter: 2008Q3

REPORT INFORMATION
  Report Type: 
  Country: None (occurrence: None)
  Receive Date: 20080703
  Receipt Date: 20080701
  Transmission Date: 20090109
  Serious: Yes (Life-Threatening)
  Sender: FDA-Public Use
  Company Number: US-RB-000954-08

PATIENT
  Sex: Female

DRUGS (3)
  1. SUBUTEX [Suspect]
     Route: 060
     Dates: start: 20080401, end: 20080423
  2. SUBOXONE [Suspect]
     Route: 060
     Dates: start: 20070401, end: 20080401
  3. SUBOXONE [Suspect]
     Route: 060
     Dates: start: 20080424

REACTIONS (2)
  - BRADYCARDIA FOETAL [None]
  - DRUG EXPOSURE DURING PREGNANCY [None]
